FAERS Safety Report 24989434 (Version 4)
Quarter: 2025Q1

REPORT INFORMATION
  Report Type: Spontaneous
  Country: BE (occurrence: BE)
  Receive Date: 20250220
  Receipt Date: 20250319
  Transmission Date: 20250408
  Serious: Yes (Death, Other)
  Sender: ROCHE
  Company Number: None

PATIENT
  Age: 67 Year
  Sex: Female

DRUGS (14)
  1. BEVACIZUMAB [Suspect]
     Active Substance: BEVACIZUMAB
     Indication: Ovarian epithelial cancer
     Dosage: 10 MG/KG, CYCLIC (EVERY 2 WEEKS)
     Route: 065
     Dates: start: 202402
  2. FILGRASTIM [Suspect]
     Active Substance: FILGRASTIM
     Indication: Ovarian epithelial cancer
     Route: 065
     Dates: start: 2012
  3. GRANULOCYTE COLONY-STIMULATING FACTOR NOS [Suspect]
     Active Substance: GRANULOCYTE COLONY-STIMULATING FACTOR NOS
     Indication: Ovarian epithelial cancer
     Dosage: 6 CYCLES Q THREE WEEKS
     Route: 065
     Dates: start: 2012
  4. TALAZOPARIB [Suspect]
     Active Substance: TALAZOPARIB
     Indication: Ovarian epithelial cancer
     Dosage: 1 MG/DAG
     Route: 065
     Dates: start: 202309
  5. PACLITAXEL [Suspect]
     Active Substance: PACLITAXEL
     Indication: Ovarian epithelial cancer
     Route: 065
     Dates: start: 2012
  6. PACLITAXEL [Suspect]
     Active Substance: PACLITAXEL
     Route: 065
     Dates: start: 2014
  7. DOXORUBICIN HYDROCHLORIDE [Suspect]
     Active Substance: DOXORUBICIN HYDROCHLORIDE
     Indication: Ovarian epithelial cancer
     Dosage: 50 MG/M2, CYCLIC (EVERY 4 WEEKS)
     Route: 065
     Dates: start: 2013
  8. DOXORUBICIN HYDROCHLORIDE [Suspect]
     Active Substance: DOXORUBICIN HYDROCHLORIDE
     Dosage: 30 MG/M2, CYCLIC (EVERY 4 WEEKS)
     Route: 065
     Dates: start: 202402
  9. CARBOPLATIN [Suspect]
     Active Substance: CARBOPLATIN
     Indication: Ovarian epithelial cancer
     Route: 065
     Dates: start: 2012
  10. CARBOPLATIN [Suspect]
     Active Substance: CARBOPLATIN
     Route: 065
     Dates: start: 2013
  11. CARBOPLATIN [Suspect]
     Active Substance: CARBOPLATIN
     Dosage: WEEKLY, AUC 2
     Route: 065
     Dates: start: 2014
  12. CARBOPLATIN [Suspect]
     Active Substance: CARBOPLATIN
     Route: 065
     Dates: start: 2022, end: 202309
  13. OLAPARIB [Suspect]
     Active Substance: OLAPARIB
     Indication: Ovarian epithelial cancer
     Dosage: 600 MG/DAG
     Route: 065
     Dates: start: 201504, end: 202305
  14. LENOGRASTIM [Suspect]
     Active Substance: LENOGRASTIM
     Indication: Ovarian epithelial cancer
     Route: 065
     Dates: start: 2012

REACTIONS (5)
  - Death [Fatal]
  - Disseminated intravascular coagulation [Unknown]
  - Acute myeloid leukaemia [Fatal]
  - Myelodysplastic syndrome transformation [Unknown]
  - Second primary malignancy [Fatal]

NARRATIVE: CASE EVENT DATE: 20240301
